FAERS Safety Report 6941791-5 (Version None)
Quarter: 2010Q3

REPORT INFORMATION
  Report Type: 
  Country: None (occurrence: None)
  Receive Date: 20100826
  Receipt Date: 20100527
  Transmission Date: 20110219
  Serious: Yes (Other)
  Sender: FDA-Public Use
  Company Number: US-ASTRAZENECA-2010SE39250

PATIENT
  Age: 12103 Day
  Sex: Female
  Weight: 112.4 kg

DRUGS (20)
  1. SEROQUEL [Suspect]
     Indication: SLEEP DISORDER
     Route: 048
     Dates: start: 20071031
  2. PROZAC [Concomitant]
     Dosage: 20 MG-40 MG
     Route: 048
     Dates: start: 20071031
  3. VALIUM [Concomitant]
     Dosage: 5 MG-10 MG
     Route: 048
     Dates: start: 20071031
  4. LORTAB 5/LORCET [Concomitant]
     Indication: BACK PAIN
     Dosage: 5-500 MG TABLET 1 PO DAILY
     Route: 048
     Dates: start: 20071120
  5. PRILOSEC [Concomitant]
     Route: 048
     Dates: start: 20071120
  6. MS CONTIN [Concomitant]
     Route: 048
     Dates: start: 20071031
  7. ZYPREXA [Concomitant]
     Dates: start: 20070101
  8. ABILIFY [Concomitant]
     Dates: start: 20070101
  9. HALDOL [Concomitant]
     Dates: start: 20070101
  10. GEODON [Concomitant]
     Dates: start: 20070101
  11. ZOLOFT [Concomitant]
     Dates: start: 20070101
  12. CELEXA [Concomitant]
     Dates: start: 20070101
  13. PAXIL [Concomitant]
     Dates: start: 20070101
  14. LAMICTAL [Concomitant]
     Dates: start: 20070101
  15. TEGRETOL [Concomitant]
     Dates: start: 20070101
  16. NEURONTIN [Concomitant]
     Dates: start: 20070101
  17. LITHIUM CARBONATE [Concomitant]
     Dates: start: 20070101
  18. DEPAKOTE [Concomitant]
     Dates: start: 20070101
  19. ASCORBIC ACID [Concomitant]
     Route: 048
     Dates: start: 20070913
  20. ORTHO TRI-CYCLEN [Concomitant]
     Route: 048
     Dates: start: 20071120

REACTIONS (6)
  - ANXIETY [None]
  - BIPOLAR DISORDER [None]
  - DYSMENORRHOEA [None]
  - IRON DEFICIENCY ANAEMIA [None]
  - MIGRAINE [None]
  - SUICIDAL IDEATION [None]
